FAERS Safety Report 7497452-X (Version None)
Quarter: 2011Q2

REPORT INFORMATION
  Report Type: 
  Country: None (occurrence: None)
  Receive Date: 20110523
  Receipt Date: 20110513
  Transmission Date: 20111010
  Serious: Yes (Other)
  Sender: FDA-Public Use
  Company Number: FR-ASTRAZENECA-2011SE18417

PATIENT
  Age: 663 Month
  Sex: Male

DRUGS (5)
  1. METHOTREXATE [Suspect]
     Route: 048
     Dates: start: 20070101
  2. INDOCIN [Suspect]
     Route: 048
     Dates: start: 20070101
  3. FOLIC ACID [Suspect]
     Route: 048
     Dates: start: 20070101
  4. REMICADE [Suspect]
     Dosage: 500 MG EVERY 5 TO 6 WEEKS (6MG/KG)
     Route: 042
     Dates: start: 20050101
  5. NEXIUM [Suspect]
     Route: 048
     Dates: start: 20070101

REACTIONS (2)
  - DEMYELINATING POLYNEUROPATHY [None]
  - PERIPHERAL SENSORY NEUROPATHY [None]
